FAERS Safety Report 18549611 (Version 11)
Quarter: 2023Q1

REPORT INFORMATION
  Report Type: Report from Study
  Country: CA (occurrence: CA)
  Receive Date: 20201126
  Receipt Date: 20230322
  Transmission Date: 20230418
  Serious: Yes (Other)
  Sender: FDA-Public Use
  Company Number: CA-TAKEDA-CA202015592

PATIENT
  Age: 7 Year
  Sex: Male
  Weight: 29.932 kg

DRUGS (20)
  1. IDURSULFASE [Suspect]
     Active Substance: IDURSULFASE
     Indication: Mucopolysaccharidosis II
     Dosage: 18 MILLIGRAM, 1/WEEK
     Route: 058
     Dates: start: 20160501
  2. IDURSULFASE [Suspect]
     Active Substance: IDURSULFASE
     Dosage: 17.5 MILLIGRAM, 1/WEEK
     Route: 050
     Dates: start: 20160501
  3. IDURSULFASE [Suspect]
     Active Substance: IDURSULFASE
     Dosage: 0.5 MILLIGRAM/KILOGRAM, 1/WEEK
     Route: 058
     Dates: start: 20160501
  4. IDURSULFASE [Suspect]
     Active Substance: IDURSULFASE
     Dosage: 0.5 MILLIGRAM/KILOGRAM, 1/WEEK
     Route: 058
     Dates: start: 20160501
  5. IDURSULFASE [Suspect]
     Active Substance: IDURSULFASE
     Dosage: 14.7 MILLIGRAM, 1/WEEK
     Route: 058
     Dates: start: 20160501
  6. IDURSULFASE [Suspect]
     Active Substance: IDURSULFASE
     Dosage: 14.7 MILLIGRAM, 1/WEEK
     Route: 058
     Dates: start: 20160501
  7. IDURSULFASE [Suspect]
     Active Substance: IDURSULFASE
     Dosage: 14.7 MILLIGRAM, 1/WEEK
     Route: 058
     Dates: start: 20160501
  8. IDURSULFASE [Suspect]
     Active Substance: IDURSULFASE
     Dosage: 18 MILLIGRAM, 1/WEEK
     Route: 058
     Dates: start: 20160501
  9. IDURSULFASE [Suspect]
     Active Substance: IDURSULFASE
     Dosage: 18 MILLIGRAM, 1/WEEK
     Route: 058
     Dates: start: 20160501
  10. IDURSULFASE [Suspect]
     Active Substance: IDURSULFASE
     Dosage: 3 DOSAGE FORM, 1/WEEK
     Route: 058
     Dates: start: 20160501
  11. IDURSULFASE [Suspect]
     Active Substance: IDURSULFASE
     Dosage: 3 DOSAGE FORM, 1/WEEK
     Route: 058
     Dates: start: 20160501
  12. IDURSULFASE [Suspect]
     Active Substance: IDURSULFASE
     Dosage: 19.5 MILLIGRAM
     Route: 050
     Dates: start: 20160501
  13. IDURSULFASE [Suspect]
     Active Substance: IDURSULFASE
     Dosage: 0.5 MILLIGRAM/KILOGRAM, 1/WEEK
     Route: 058
     Dates: start: 20200622
  14. DIMENHYDRINATE [Concomitant]
     Active Substance: DIMENHYDRINATE
     Indication: Product used for unknown indication
     Dosage: 42 MILLIGRAM
     Route: 042
  15. DIMENHYDRINATE [Concomitant]
     Active Substance: DIMENHYDRINATE
     Dosage: 40 MILLIGRAM
     Route: 042
  16. DIPHENHYDRAMINE [Concomitant]
     Active Substance: DIPHENHYDRAMINE
     Indication: Pruritus
     Dosage: 37.5 MILLIGRAM
     Route: 048
  17. DIPHENHYDRAMINE [Concomitant]
     Active Substance: DIPHENHYDRAMINE
     Indication: Urticaria
     Dosage: 25 MILLIGRAM
     Route: 042
  18. METHYLPREDNISOLONE [Concomitant]
     Active Substance: METHYLPREDNISOLONE
     Indication: Product used for unknown indication
     Dosage: 33.6 MILLIGRAM
     Route: 042
  19. METHYLPREDNISOLONE [Concomitant]
     Active Substance: METHYLPREDNISOLONE
     Dosage: 39 MILLIGRAM
     Route: 042
  20. VENTOLIN [Concomitant]
     Active Substance: ALBUTEROL SULFATE
     Indication: Product used for unknown indication
     Dosage: 2 DOSAGE FORM
     Route: 065

REACTIONS (12)
  - Device breakage [Not Recovered/Not Resolved]
  - Malaise [Not Recovered/Not Resolved]
  - Blood pressure increased [Unknown]
  - Respiratory rate decreased [Unknown]
  - Weight decreased [Unknown]
  - Heart rate decreased [Unknown]
  - Weight increased [Unknown]
  - Abdominal discomfort [Unknown]
  - Body temperature decreased [Unknown]
  - Infusion related reaction [Unknown]
  - Product dose omission issue [Not Recovered/Not Resolved]
  - Inappropriate schedule of product administration [Unknown]

NARRATIVE: CASE EVENT DATE: 20200504
